FAERS Safety Report 25317325 (Version 1)
Quarter: 2025Q2

REPORT INFORMATION
  Report Type: Spontaneous
  Country: US (occurrence: US)
  Receive Date: 20250515
  Receipt Date: 20250515
  Transmission Date: 20250716
  Serious: No
  Sender: GLAXOSMITHKLINE
  Company Number: US-GSK-US2025AMR056840

PATIENT
  Sex: Female

DRUGS (2)
  1. NUCALA [Suspect]
     Active Substance: MEPOLIZUMAB
     Indication: Asthma
     Dosage: 100 MG, Q4W
     Dates: start: 202501
  2. LIOTHYRONINE [Suspect]
     Active Substance: LIOTHYRONINE
     Indication: Product used for unknown indication

REACTIONS (1)
  - Dyspnoea [Not Recovered/Not Resolved]
